FAERS Safety Report 9684288 (Version 2)
Quarter: 2014Q1

REPORT INFORMATION
  Report Type: Spontaneous
  Country: US (occurrence: US)
  Receive Date: 20131112
  Receipt Date: 20140113
  Transmission Date: 20141002
  Serious: Yes (Hospitalization)
  Sender: FDA-Public Use
  Company Number: US-B.I. PHARMACEUTICALS,INC./RIDGEFIELD-2013-BI-36361BP

PATIENT
  Sex: Female
  Weight: 131.54 kg

DRUGS (9)
  1. PRADAXA [Suspect]
     Indication: ATRIAL FIBRILLATION
     Dosage: 300 MG
     Dates: start: 20111018, end: 20111230
  2. COMBIGAN [Concomitant]
     Dates: start: 2000
  3. TRAVATAN Z [Concomitant]
     Dates: start: 2000
  4. BENAZEPRIL/HYDROCHLOROTHIAZIDE [Concomitant]
  5. HYDROCODONE/ACETAMINOPHEN [Concomitant]
     Indication: PAIN
  6. IRON [Concomitant]
     Dosage: 975 MG
  7. DIGOXIN [Concomitant]
     Dosage: 0.125 MG
  8. BACTRIM DS [Concomitant]
  9. FUROSEMIDE [Concomitant]
     Dosage: 40 MG

REACTIONS (6)
  - Gastrointestinal haemorrhage [Recovered/Resolved]
  - Haemorrhagic anaemia [Unknown]
  - Coagulopathy [Unknown]
  - Renal failure acute [Unknown]
  - Nausea [Unknown]
  - Headache [Unknown]
